FAERS Safety Report 9933705 (Version 2)
Quarter: 2014Q1

REPORT INFORMATION
  Report Type: Report from Study
  Country: US (occurrence: US)
  Receive Date: 20140228
  Receipt Date: 20140228
  Transmission Date: 20141002
  Serious: No
  Sender: FDA-Public Use
  Company Number: US-MYLANLABS-2013S1011012

PATIENT
  Sex: Female

DRUGS (3)
  1. AMNESTEEM CAPSULES [Suspect]
     Indication: ACNE
     Route: 048
     Dates: start: 201303, end: 20130416
  2. AMNESTEEM CAPSULES [Suspect]
     Indication: ACNE
     Route: 048
     Dates: start: 20130417, end: 20130506
  3. CONTRACEPTIVE [Concomitant]
     Indication: CONTRACEPTION
     Route: 059

REACTIONS (2)
  - Dry skin [Not Recovered/Not Resolved]
  - Lip dry [Not Recovered/Not Resolved]
